FAERS Safety Report 8580584-2 (Version None)
Quarter: 2012Q3

REPORT INFORMATION
  Report Type: 
  Country: None (occurrence: None)
  Receive Date: 20120809
  Receipt Date: 20120806
  Transmission Date: 20120928
  Serious: Yes (Hospitalization, Other)
  Sender: FDA-Public Use
  Company Number: US-AMGEN-USASP2011026020

PATIENT
  Age: 12 Year
  Sex: Male
  Weight: 95.9 kg

DRUGS (38)
  1. NPLATE [Suspect]
  2. NPLATE [Suspect]
  3. MAGNESIUM [Concomitant]
  4. CHOLECALCIFEROL [Concomitant]
     Route: 048
  5. NPLATE [Suspect]
  6. NPLATE [Suspect]
  7. GABAPENTIN [Concomitant]
  8. MYCOPHENOLATE MOFETIL [Concomitant]
     Dosage: 1000 MG, Q12H
     Route: 048
  9. POTASSIUM CHLORIDE [Concomitant]
     Dosage: 20 MEQ, UNK
     Route: 042
  10. MS CONTIN [Concomitant]
  11. PAMIDRONATE DISODIUM [Concomitant]
     Dosage: UNK UNK, Q2MO
  12. CALCIUM+VIT D                      /00944201/ [Concomitant]
  13. MULTIVITAMIN                       /00097801/ [Concomitant]
     Route: 048
  14. NPLATE [Suspect]
     Indication: IDIOPATHIC THROMBOCYTOPENIC PURPURA
     Dosage: 485 MUG, QWK
     Dates: start: 20110110
  15. NPLATE [Suspect]
  16. NPLATE [Suspect]
  17. ACYCLOVIR [Concomitant]
     Dosage: 800 MG, UNK
     Route: 048
  18. BACTRIM [Concomitant]
     Dosage: 160 MG, UNK
     Route: 048
  19. VITAMIN D [Concomitant]
  20. SODIUM CHLORIDE [Concomitant]
     Dosage: 500 ML, UNK
     Route: 042
  21. PLATELETS [Concomitant]
     Dosage: UNK
     Dates: start: 20110120
  22. NPLATE [Suspect]
  23. PREDNISONE TAB [Concomitant]
     Dosage: 45 MG, UNK
     Route: 048
  24. PERMANGANATE POTASSIUM [Concomitant]
  25. MAGNESIUM SULFATE [Concomitant]
     Dosage: 22 MEQ, UNK
     Route: 042
  26. NPLATE [Suspect]
  27. PENICILLIN [Concomitant]
     Dosage: 750 MG, BID
     Route: 048
  28. MICAFUNGIN [Concomitant]
  29. VIACTIV                            /00751501/ [Concomitant]
     Route: 048
  30. NPLATE [Suspect]
  31. NPLATE [Suspect]
  32. CELLCEPT [Concomitant]
     Dosage: 1000 MG, UNK
     Route: 048
  33. LOVAZA [Concomitant]
     Indication: HYPERLIPIDAEMIA
     Dosage: UNK
     Dates: end: 20110520
  34. EYE DROPS                          /00256502/ [Concomitant]
  35. PRILOSEC [Concomitant]
  36. NPLATE [Suspect]
  37. OMEPRAZOLE [Concomitant]
     Dosage: 20 MG, UNK
     Route: 048
  38. PROTEIN [Concomitant]

REACTIONS (22)
  - GRAFT VERSUS HOST DISEASE [None]
  - ELECTROLYTE DEPLETION [None]
  - HYPERLIPIDAEMIA [None]
  - HYPOGAMMAGLOBULINAEMIA [None]
  - PALLOR [None]
  - EOSINOPHILIA [None]
  - INTERTRIGO CANDIDA [None]
  - DIARRHOEA [None]
  - OSTEONECROSIS [None]
  - RHINOVIRUS INFECTION [None]
  - HYPOKALAEMIA [None]
  - ODYNOPHAGIA [None]
  - MALAISE [None]
  - DERMATITIS EXFOLIATIVE [None]
  - ARTHRALGIA [None]
  - STAPHYLOCOCCAL BACTERAEMIA [None]
  - PYREXIA [None]
  - METAPNEUMOVIRUS INFECTION [None]
  - HYPOMAGNESAEMIA [None]
  - GASTRITIS [None]
  - TRANSAMINASES INCREASED [None]
  - TINEA CRURIS [None]
